FAERS Safety Report 7814222-0 (Version None)
Quarter: 2011Q4

REPORT INFORMATION
  Report Type: 
  Country: None (occurrence: None)
  Receive Date: 20111014
  Receipt Date: 20111012
  Transmission Date: 20120403
  Serious: Yes (Other)
  Sender: FDA-Public Use
  Company Number: US-BRISTOL-MYERS SQUIBB COMPANY-15979313

PATIENT
  Age: 52 Year
  Sex: Female
  Weight: 91 kg

DRUGS (1)
  1. ABILIFY [Suspect]
     Indication: BIPOLAR DISORDER
     Dosage: 5MG,THERAPY ON 08JUL11,15MG 30 DAYS
     Dates: start: 20070101

REACTIONS (10)
  - DIARRHOEA [None]
  - PYREXIA [None]
  - FEELING HOT [None]
  - VOMITING [None]
  - MALAISE [None]
  - NAUSEA [None]
  - TYPE 2 DIABETES MELLITUS [None]
  - CARDIAC FLUTTER [None]
  - CHILLS [None]
  - ASTHENIA [None]
